FAERS Safety Report 9465491 (Version 2)
Quarter: 2013Q3

REPORT INFORMATION
  Report Type: Report from Study
  Country: AU (occurrence: AU)
  Receive Date: 20130820
  Receipt Date: 20130902
  Transmission Date: 20140515
  Serious: Yes (Hospitalization)
  Sender: FDA-Public Use
  Company Number: PHHY2013AU089062

PATIENT
  Age: 76 Year
  Sex: Female

DRUGS (1)
  1. ACLASTA [Suspect]
     Dosage: 5 MG, UNK
     Route: 042
     Dates: start: 201204

REACTIONS (4)
  - Pneumonia [Recovered/Resolved]
  - Spinal fracture [Recovered/Resolved]
  - Nasopharyngitis [Unknown]
  - Cough [Not Recovered/Not Resolved]
